FAERS Safety Report 8140595-8 (Version None)
Quarter: 2012Q1

REPORT INFORMATION
  Report Type: 
  Country: None (occurrence: None)
  Receive Date: 20120213
  Receipt Date: 20120213
  Transmission Date: 20120608
  Serious: Yes (Other)
  Sender: FDA-Public Use
  Company Number: None

PATIENT
  Sex: Male
  Weight: 98.8842 kg

DRUGS (3)
  1. AUGMENTIN '125' [Suspect]
     Indication: NASOPHARYNGITIS
     Dosage: 1 TABLET TWICE DAILY
     Dates: start: 20111022, end: 20111029
  2. CIPRO [Concomitant]
  3. AZITHROMYCIN [Suspect]
     Indication: NASOPHARYNGITIS
     Dosage: FIRST DAY 2 TABLETS 1 TABLET DAILY FOR 5 DAYS
     Dates: start: 20111012, end: 20111016

REACTIONS (1)
  - DRUG INEFFECTIVE [None]
